FAERS Safety Report 6395612-2 (Version None)
Quarter: 2009Q4

REPORT INFORMATION
  Report Type: 
  Country: None (occurrence: None)
  Receive Date: 20091006
  Receipt Date: 20090916
  Transmission Date: 20100525
  Serious: Yes (Hospitalization)
  Sender: FDA-Public Use
  Company Number: JPI-P-008648

PATIENT
  Age: 61 Year
  Sex: Female
  Weight: 60.1016 kg

DRUGS (18)
  1. XYREM [Suspect]
     Indication: NARCOLEPSY
     Dosage: 4.5 GM (2.25 GM,2 IN 1 D),ORAL
     Route: 048
     Dates: start: 20090801, end: 20090904
  2. ALPRAZOLAM [Concomitant]
  3. ACETYLSALICYLIC ACID [Concomitant]
  4. BUMETANIDE [Concomitant]
  5. POTASSIUM CHLORIDE [Concomitant]
  6. CALCIUM [Concomitant]
  7. CLONIDINE [Concomitant]
  8. ESOMEPRAZOLE MAGNESIUM [Concomitant]
  9. HYDROMORPHONE [Concomitant]
  10. LEVOTHYROXINE SODIUM [Concomitant]
  11. LORATADINE [Concomitant]
  12. MIRTAZAPINE [Concomitant]
  13. MOMETASONE FUROATE (SPRAY (NOT INHALATION)) [Concomitant]
  14. NITROGLYCERIN [Concomitant]
  15. OXYBUTIN [Concomitant]
  16. POLYETHYLENE GLYCOL [Concomitant]
  17. FLUTICASONE PROPIONATE AND SALMETEROL [Concomitant]
  18. LIDODERM [Concomitant]

REACTIONS (14)
  - ABNORMAL BEHAVIOUR [None]
  - ASTHENIA [None]
  - CATATONIA [None]
  - DIZZINESS [None]
  - FATIGUE [None]
  - FEAR [None]
  - GRAND MAL CONVULSION [None]
  - INFLUENZA [None]
  - KIDNEY INFECTION [None]
  - MEMORY IMPAIRMENT [None]
  - NAUSEA [None]
  - PARALYSIS [None]
  - PARANOIA [None]
  - VISION BLURRED [None]
